FAERS Safety Report 4668278-7 (Version None)
Quarter: 2005Q2

REPORT INFORMATION
  Report Type: 
  Country: None (occurrence: None)
  Receive Date: 20050523
  Receipt Date: 20041129
  Transmission Date: 20051028
  Serious: Yes (Other)
  Sender: FDA-Public Use
  Company Number: PHEH2004US12757

PATIENT
  Age: 74 Year
  Sex: Male

DRUGS (17)
  1. PRILOSEC [Concomitant]
  2. ZESTRIL [Concomitant]
  3. ASPIRIN [Concomitant]
  4. SYNTHROID [Concomitant]
  5. ATENOLOL [Concomitant]
  6. CLARITIN [Concomitant]
  7. ZOCOR [Concomitant]
  8. HYDROCHLOROTHIAZIDE [Concomitant]
  9. CUTIVATE [Concomitant]
  10. OXYCODONE AND ASPIRIN [Concomitant]
  11. MULTI-VITAMINS [Concomitant]
  12. CALCIUM W/VITAMIN D NOS [Concomitant]
  13. METAMUCIL [Concomitant]
  14. ZOMETA [Suspect]
     Indication: MULTIPLE MYELOMA
     Dosage: 4MG QMO
     Route: 042
     Dates: start: 20030226, end: 20040305
  15. AREDIA [Suspect]
     Indication: MULTIPLE MYELOMA
     Dosage: 90MG QMO
     Dates: start: 20010404, end: 20030127
  16. AREDIA [Suspect]
     Dosage: 90MG QMO
     Dates: start: 20040405
  17. CHEMOTHERAPEUTICS,OTHER [Concomitant]

REACTIONS (7)
  - IMPAIRED HEALING [None]
  - OPEN WOUND [None]
  - ORAL SURGERY [None]
  - OSTEOMYELITIS CHRONIC [None]
  - OSTEONECROSIS [None]
  - PAIN [None]
  - TOOTH EXTRACTION [None]
